FAERS Safety Report 10584460 (Version 1)
Quarter: 2014Q4

REPORT INFORMATION
  Report Type: Spontaneous
  Country: FR (occurrence: None)
  Receive Date: 20141112
  Receipt Date: 20141112
  Transmission Date: 20150529
  Serious: Yes (Hospitalization, Other)
  Sender: FDA-Public Use
  Company Number: 201408IM006608

PATIENT
  Age: 44 Year
  Sex: Male

DRUGS (14)
  1. ESBRIET [Suspect]
     Active Substance: PIRFENIDONE
     Indication: PULMONARY FIBROSIS
     Route: 048
     Dates: start: 20140521
  2. AUGMENTIN [Suspect]
     Active Substance: AMOXICILLIN\CLAVULANATE POTASSIUM
     Indication: THROMBOCYTOPENIA
  3. AUGMENTIN [Suspect]
     Active Substance: AMOXICILLIN\CLAVULANATE POTASSIUM
     Indication: NEUTROPENIA
  4. RISPERDAL [Suspect]
     Active Substance: RISPERIDONE
     Indication: DEPRESSION
     Dosage: 4 MG, ORAL
     Route: 048
     Dates: start: 20140110, end: 20140721
  5. ALPRAZOLAM. [Suspect]
     Active Substance: ALPRAZOLAM
     Indication: ANXIETY
     Route: 048
     Dates: start: 20140707
  6. ZOLPIDEM [Suspect]
     Active Substance: ZOLPIDEM\ZOLPIDEM TARTRATE
     Route: 048
  7. MIOREL [Suspect]
     Active Substance: ORPHENADRINE
     Indication: MUSCLE SPASMS
     Route: 048
     Dates: start: 20140624, end: 20140725
  8. CYMBALTA [Suspect]
     Active Substance: DULOXETINE HYDROCHLORIDE
     Indication: DEPRESSION
     Route: 048
     Dates: start: 201405, end: 20140801
  9. TERCIAN [Suspect]
     Active Substance: CYAMEMAZINE
     Indication: ANXIETY
     Dates: start: 20140718
  10. SERTRALINE [Suspect]
     Active Substance: SERTRALINE HYDROCHLORIDE
     Dates: start: 20140725
  11. TERCIAN [Suspect]
     Active Substance: CYAMEMAZINE
     Indication: DEPRESSION
     Dates: start: 20140718
  12. PARIET [Suspect]
     Active Substance: RABEPRAZOLE SODIUM
     Indication: PRODUCT USED FOR UNKNOWN INDICATION
     Dates: start: 20140715, end: 20140722
  13. AUGMENTIN [Suspect]
     Active Substance: AMOXICILLIN\CLAVULANATE POTASSIUM
     Indication: NASOPHARYNGITIS
  14. AUGMENTIN [Suspect]
     Active Substance: AMOXICILLIN\CLAVULANATE POTASSIUM
     Indication: MENINGITIS ASEPTIC

REACTIONS (22)
  - Bone marrow failure [None]
  - Lung disorder [None]
  - Disease progression [None]
  - Agranulocytosis [None]
  - Anaemia [None]
  - Depression [None]
  - Meningitis aseptic [None]
  - Pyrexia [None]
  - Brain stem thrombosis [None]
  - Malnutrition [None]
  - Asthenia [None]
  - Anxiety [None]
  - Bronchial disorder [None]
  - Acute respiratory failure [None]
  - Neutropenia [None]
  - Thrombocytopenia [None]
  - Pulmonary fibrosis [None]
  - Melaena [None]
  - Mucosal induration [None]
  - Cough [None]
  - Weight decreased [None]
  - Nasopharyngitis [None]

NARRATIVE: CASE EVENT DATE: 20140704
